FAERS Safety Report 10149125 (Version 1)
Quarter: 2014Q2

REPORT INFORMATION
  Report Type: Spontaneous
  Country: US (occurrence: None)
  Receive Date: 20140501
  Receipt Date: 20140501
  Transmission Date: 20141212
  Serious: Yes (Hospitalization)
  Sender: FDA-Public Use
  Company Number: None

PATIENT
  Age: 64 Year
  Sex: Female

DRUGS (8)
  1. HYDROMORPHONE [Suspect]
     Indication: PAIN
     Route: 042
     Dates: start: 20130515, end: 20130515
  2. ASPIRIN [Concomitant]
  3. CALCIUM [Concomitant]
  4. CETIRIZINE [Concomitant]
  5. CLINDAMYCIN [Concomitant]
  6. DOCUSATE [Concomitant]
  7. ENOXAPARIN [Concomitant]
  8. LEVETIRACETAM [Concomitant]

REACTIONS (3)
  - Lethargy [None]
  - Respiratory rate decreased [None]
  - Depressed level of consciousness [None]
